FAERS Safety Report 14165888 (Version 2)
Quarter: 2018Q1

REPORT INFORMATION
  Report Type: Report from Study
  Country: US (occurrence: US)
  Receive Date: 20171107
  Receipt Date: 20180109
  Transmission Date: 20180508
  Serious: Yes (Hospitalization)
  Sender: FDA-Public Use
  Company Number: US-EISAI MEDICAL RESEARCH-EC-2017-032668

PATIENT
  Age: 59 Year
  Sex: Female
  Weight: 67.4 kg

DRUGS (19)
  1. NYSTATIN. [Concomitant]
     Active Substance: NYSTATIN
  2. OXYCODONE [Concomitant]
     Active Substance: OXYCODONE
  3. LENVATINIB [Suspect]
     Active Substance: LENVATINIB
     Route: 048
     Dates: start: 201710, end: 20171029
  4. AMLODIPINE [Concomitant]
     Active Substance: AMLODIPINE BESYLATE
  5. IBUPROFEN. [Concomitant]
     Active Substance: IBUPROFEN
  6. HALOPERIDOL. [Concomitant]
     Active Substance: HALOPERIDOL
  7. LENVATINIB [Suspect]
     Active Substance: LENVATINIB
     Indication: ENDOMETRIAL CANCER RECURRENT
     Route: 048
     Dates: start: 20170920, end: 20171009
  8. POTASSIUM CHLORIDE. [Concomitant]
     Active Substance: POTASSIUM CHLORIDE
  9. RIVAROXABAN [Concomitant]
     Active Substance: RIVAROXABAN
  10. TYLENOL [Concomitant]
     Active Substance: ACETAMINOPHEN
  11. METHADONE [Concomitant]
     Active Substance: METHADONE HYDROCHLORIDE
  12. ALUM/MG/HYDROX-SIMETHICONE [Concomitant]
  13. CEPHALEXIN. [Concomitant]
     Active Substance: CEPHALEXIN
  14. PACLITAXEL. [Suspect]
     Active Substance: PACLITAXEL
     Indication: ENDOMETRIAL CANCER RECURRENT
     Route: 041
     Dates: start: 20170920, end: 20171025
  15. CLARITIN [Concomitant]
     Active Substance: LORATADINE
  16. DIPHENHYDRAMINE. [Concomitant]
     Active Substance: DIPHENHYDRAMINE
  17. MELATONIN [Concomitant]
     Active Substance: MELATONIN
  18. DEXAMETHASONE. [Concomitant]
     Active Substance: DEXAMETHASONE
  19. MAGIC MOUTHWASH [Concomitant]
     Active Substance: DIPHENHYDRAMINE HYDROCHLORIDE\LIDOCAINE HYDROCHLORIDE\NYSTATIN

REACTIONS (6)
  - Haematuria [Unknown]
  - Fatigue [Unknown]
  - Decreased appetite [Unknown]
  - Neutrophil count decreased [Unknown]
  - Anaemia [Unknown]
  - Muscular weakness [Unknown]

NARRATIVE: CASE EVENT DATE: 20171030
